FAERS Safety Report 17220134 (Version 1)
Quarter: 2019Q4

REPORT INFORMATION
  Report Type: Report from Study
  Country: AR (occurrence: AR)
  Receive Date: 20191231
  Receipt Date: 20191231
  Transmission Date: 20200122
  Serious: Yes (Hospitalization, Other)
  Sender: FDA-Public Use
  Company Number: AR-ACTELION-A-CH2019-194199

PATIENT
  Sex: Female
  Weight: 74 kg

DRUGS (1)
  1. TRACLEER [Suspect]
     Active Substance: BOSENTAN
     Indication: PULMONARY ARTERIAL HYPERTENSION
     Dosage: 125 MG, QD
     Route: 048
     Dates: start: 20151201

REACTIONS (5)
  - Musculoskeletal discomfort [Unknown]
  - Pain [Recovering/Resolving]
  - Infection [Unknown]
  - Dysphagia [Unknown]
  - Surgery [Unknown]
